FAERS Safety Report 21298254 (Version 6)
Quarter: 2022Q4

REPORT INFORMATION
  Report Type: Spontaneous
  Country: US (occurrence: US)
  Receive Date: 20220906
  Receipt Date: 20221219
  Transmission Date: 20230112
  Serious: No
  Sender: FDA-Public Use
  Company Number: US-VERTEX PHARMACEUTICALS-2022-012730

PATIENT
  Sex: Female
  Weight: 43 kg

DRUGS (7)
  1. TRIKAFTA [Suspect]
     Active Substance: ELEXACAFTOR\IVACAFTOR\TEZACAFTOR
     Indication: Cystic fibrosis
     Dosage: 2 ORANGE TABLETS IN THE MORNING AND 1 BLUE TABLET IN THE EVENING
     Route: 048
     Dates: start: 20191111
  2. PREDNISONE [Concomitant]
     Active Substance: PREDNISONE
  3. VIMPAT [Concomitant]
     Active Substance: LACOSAMIDE
  4. AZITHROMYCIN [Concomitant]
     Active Substance: AZITHROMYCIN
  5. PULMOZYME [Concomitant]
     Active Substance: DORNASE ALFA
  6. ZOLOFT [Concomitant]
     Active Substance: SERTRALINE HYDROCHLORIDE
  7. SINGULAIR [Concomitant]
     Active Substance: MONTELUKAST SODIUM

REACTIONS (15)
  - Malaise [Recovering/Resolving]
  - Infective pulmonary exacerbation of cystic fibrosis [Unknown]
  - Dehydration [Unknown]
  - Increased bronchial secretion [Unknown]
  - Pseudomonas test positive [Unknown]
  - Product temperature excursion issue [Recovered/Resolved]
  - Viral infection [Recovered/Resolved]
  - Pulmonary congestion [Recovered/Resolved]
  - Pulmonary function test decreased [Recovering/Resolving]
  - Oxygen saturation decreased [Recovered/Resolved]
  - Respiratory tract congestion [Recovered/Resolved]
  - Fatigue [Recovered/Resolved]
  - Blood pressure decreased [Recovered/Resolved]
  - Ear infection [Recovered/Resolved]
  - Productive cough [Recovered/Resolved]

NARRATIVE: CASE EVENT DATE: 20220101
